FAERS Safety Report 4818095-X (Version None)
Quarter: 2005Q4

REPORT INFORMATION
  Report Type: 
  Country: None (occurrence: None)
  Receive Date: 20051102
  Receipt Date: 20051007
  Transmission Date: 20060501
  Serious: Yes (Death)
  Sender: FDA-Public Use
  Company Number: JP-JPN-A20052403

PATIENT
  Age: 73 Year
  Sex: Male
  Weight: 60 kg

DRUGS (12)
  1. PAXIL [Suspect]
     Indication: DEPRESSION
     Dosage: 10MG TWICE PER DAY
     Route: 048
     Dates: start: 20051003, end: 20051005
  2. TRIAZOLAM [Suspect]
     Dosage: 28TAB PER DAY
  3. MARGENOL [Concomitant]
     Indication: DEPRESSION
     Dosage: 50MG THREE TIMES PER DAY
     Route: 048
     Dates: start: 20051003, end: 20051005
  4. ANPLAG [Concomitant]
     Indication: ARTERIOSCLEROSIS OBLITERANS
     Dosage: 100MG PER DAY
     Route: 048
  5. ASCOMARNA [Concomitant]
     Indication: INSOMNIA
     Route: 048
     Dates: end: 20051005
  6. NAUZELIN [Concomitant]
     Route: 065
  7. BERIZYM [Concomitant]
     Indication: GASTRITIS
     Dosage: .5G PER DAY
     Route: 048
  8. SELBEX [Concomitant]
     Indication: GASTRITIS
     Dosage: 3U PER DAY
     Route: 048
     Dates: start: 20051002, end: 20051005
  9. TANATRIL [Concomitant]
     Indication: HYPERTENSION
     Dosage: 5MG PER DAY
     Route: 048
  10. URINORM [Concomitant]
     Dosage: 25MG PER DAY
     Route: 048
  11. PURSENNID [Concomitant]
     Indication: CONSTIPATION
     Dosage: 2TAB PER DAY
     Route: 048
     Dates: start: 20051002, end: 20051005
  12. ALOSENN [Concomitant]
     Indication: CONSTIPATION
     Dosage: 1G PER DAY
     Route: 048
     Dates: start: 20051004, end: 20051005

REACTIONS (2)
  - COMPLETED SUICIDE [None]
  - OVERDOSE [None]
